FAERS Safety Report 5047515-3 (Version None)
Quarter: 2006Q2

REPORT INFORMATION
  Report Type: 
  Country: None (occurrence: None)
  Receive Date: 20060601
  Receipt Date: 20060327
  Transmission Date: 20061013
  Serious: No
  Sender: FDA-Public Use
  Company Number: 2006PV010964

PATIENT
  Age: 60 Year
  Sex: Female
  Weight: 133.8111 kg

DRUGS (7)
  1. BYETTA [Suspect]
     Indication: DIABETES MELLITUS NON-INSULIN-DEPENDENT
     Dosage: 5 MCG;BID;SC
     Route: 058
     Dates: start: 20060314
  2. DEPO-MEDROL [Concomitant]
  3. IBUPROFEN [Concomitant]
  4. OXYCODONE HCL [Concomitant]
  5. ZANAFLEX [Concomitant]
  6. GLIPIZIDE [Concomitant]
  7. UNKNOWN MEDICATION(S) [Concomitant]

REACTIONS (3)
  - ARTHRALGIA [None]
  - PAIN IN EXTREMITY [None]
  - SCIATICA [None]
